FAERS Safety Report 4710776-1 (Version None)
Quarter: 2005Q3

REPORT INFORMATION
  Report Type: 
  Country: None (occurrence: None)
  Receive Date: 20050711
  Receipt Date: 20050701
  Transmission Date: 20060218
  Serious: Yes (Other)
  Sender: FDA-Public Use
  Company Number: PHBS2005PT09562

PATIENT
  Sex: Male

DRUGS (2)
  1. GLEEVEC [Suspect]
     Route: 048
  2. GLEEVEC [Suspect]
     Dosage: 600 MG/D
     Route: 048

REACTIONS (6)
  - BLOOD CREATININE INCREASED [None]
  - COOMBS TEST POSITIVE [None]
  - HAEMATOCRIT DECREASED [None]
  - HAEMOLYSIS [None]
  - RENAL FAILURE [None]
  - URINARY SEDIMENT ABNORMAL [None]
